FAERS Safety Report 5430734-1 (Version None)
Quarter: 2007Q3

REPORT INFORMATION
  Report Type: 
  Country: None (occurrence: None)
  Receive Date: 20070830
  Receipt Date: 20061129
  Transmission Date: 20080115
  Serious: No
  Sender: FDA-Public Use
  Company Number: A0626351A

PATIENT
  Age: 32 Year
  Sex: Female
  Weight: 81.8 kg

DRUGS (4)
  1. WELLBUTRIN XL [Suspect]
     Indication: DEPRESSION
     Dosage: 300MG PER DAY
     Route: 048
     Dates: start: 20061014
  2. ZOLOFT [Concomitant]
     Dosage: 200MG IN THE MORNING
     Route: 048
  3. ATIVAN [Concomitant]
     Dosage: .5MG AS REQUIRED
     Route: 048
  4. BIRTH CONTROL PILLS [Concomitant]

REACTIONS (1)
  - RASH PRURITIC [None]
